FAERS Safety Report 17888843 (Version 2)
Quarter: 2020Q2

REPORT INFORMATION
  Report Type: Spontaneous
  Country: US (occurrence: US)
  Receive Date: 20200612
  Receipt Date: 20200617
  Transmission Date: 20200714
  Serious: Yes (Other)
  Sender: FDA-Public Use
  Company Number: US-JNJFOC-20200612618

PATIENT
  Sex: Male
  Weight: 81.72 kg

DRUGS (1)
  1. XARELTO [Suspect]
     Active Substance: RIVAROXABAN
     Indication: PRODUCT USED FOR UNKNOWN INDICATION
     Dosage: XARELTO FOR PAST 7-8 YEARS
     Route: 048

REACTIONS (5)
  - Drug ineffective [Unknown]
  - Haemorrhoids [Unknown]
  - Haematochezia [Unknown]
  - Product packaging issue [Unknown]
  - Suspected counterfeit product [Unknown]

NARRATIVE: CASE EVENT DATE: 2020
